FAERS Safety Report 21081320 (Version 2)
Quarter: 2023Q1

REPORT INFORMATION
  Report Type: Spontaneous
  Country: JP (occurrence: JP)
  Receive Date: 20220714
  Receipt Date: 20230117
  Transmission Date: 20230418
  Serious: Yes (Other)
  Sender: FDA-Public Use
  Company Number: JP-BAYER-2022A093544

PATIENT
  Age: 76 Year
  Sex: Female

DRUGS (2)
  1. EYLEA [Suspect]
     Active Substance: AFLIBERCEPT
     Indication: Macular oedema
     Dosage: 0.05 ML, ONCE, SOLUTION FOR INJECTION
     Route: 031
  2. EYLEA [Suspect]
     Active Substance: AFLIBERCEPT
     Indication: Retinal vein occlusion

REACTIONS (7)
  - Vitreous haemorrhage [Unknown]
  - Hypotony of eye [Recovering/Resolving]
  - Ciliary body disorder [Recovered/Resolved]
  - Ciliary body disorder [Recovered/Resolved]
  - Hypotony of eye [Recovering/Resolving]
  - Choroidal detachment [Recovered/Resolved]
  - Chorioretinal folds [Recovered/Resolved]
